FAERS Safety Report 8133916-3 (Version None)
Quarter: 2012Q1

REPORT INFORMATION
  Report Type: 
  Country: None (occurrence: None)
  Receive Date: 20120213
  Receipt Date: 20120203
  Transmission Date: 20120608
  Serious: Yes (Other)
  Sender: FDA-Public Use
  Company Number: US-ASTRAZENECA-2009UW00220

PATIENT
  Age: 59 Year
  Sex: Female

DRUGS (2)
  1. NEXIUM [Suspect]
     Route: 048
  2. ARIMIDEX [Suspect]
     Route: 048

REACTIONS (7)
  - DRUG INEFFECTIVE [None]
  - DRUG DOSE OMISSION [None]
  - OSTEOPOROSIS [None]
  - OESOPHAGEAL RUPTURE [None]
  - NIGHT SWEATS [None]
  - POOR QUALITY SLEEP [None]
  - DYSPEPSIA [None]
